FAERS Safety Report 9440476 (Version 4)
Quarter: 2013Q3

REPORT INFORMATION
  Report Type: Spontaneous
  Country: DK (occurrence: DK)
  Receive Date: 20130805
  Receipt Date: 20130828
  Transmission Date: 20140515
  Serious: Yes (Other)
  Sender: FDA-Public Use
  Company Number: DK-TEVA-423380ISR

PATIENT
  Age: 41 Year
  Sex: Female

DRUGS (11)
  1. ETOPOSIDE [Suspect]
     Indication: EWING^S SARCOMA
     Dosage: IN 2 SERIES OF 300 MG DAILY IN 3 CONSECUTIVE DAYS
     Route: 065
  2. ETOPOSIDE [Interacting]
     Indication: EWING^S SARCOMA
     Dosage: 1 SERIES OF 240 MG DAILY FOR 3 CONSECUTIVE DAYS
     Route: 065
  3. ETOPOSIDE [Interacting]
     Indication: EWING^S SARCOMA
     Dosage: 3 SERIES OF 180 MG DAILY FOR 3 CONSECUTIVE DAYS
     Route: 065
  4. DOXORUBICIN [Suspect]
     Indication: EWING^S SARCOMA
     Dosage: 40 MG, DAILY FOR 3 CONSECUTIVE DAYS IN 4 SERIES
     Route: 065
  5. DOXORUBICIN [Suspect]
     Dosage: 30 MG, DAILY FOR 3 CONSECUTIVE DAYS IN 2 SERIES
  6. MIRTAZAPINE [Suspect]
  7. VINCRISTINE [Interacting]
     Indication: EWING^S SARCOMA
     Dosage: 5 SERIES OF 2 MG SINGLE DOSE
     Route: 065
  8. IFOSFAMIDE [Interacting]
     Indication: EWING^S SARCOMA
     Dosage: 3 SERIES OF 6 GRAM DAILY FOR 3 CONSECUTIVE DAYS
     Route: 065
  9. IFOSFAMIDE [Interacting]
     Dosage: 1 SERIES OF 4.8 GRAM DAILY FOR 3 CONSECUTIVE DAYS
  10. FLUCONAZOLE [Interacting]
     Indication: ORAL CANDIDIASIS
     Dosage: 100 MILLIGRAM DAILY; 100MG DAILY DOSE FOR 10 DAYS RELATED TO THE CHEMOTHERAPY SERIES
     Route: 048
  11. PREDNISOLONE [Interacting]
     Route: 065

REACTIONS (11)
  - Neurotoxicity [Recovering/Resolving]
  - Renal impairment [Unknown]
  - Bone marrow failure [Unknown]
  - Mucosal inflammation [Unknown]
  - Paraesthesia [Recovering/Resolving]
  - Oral candidiasis [Unknown]
  - Drug interaction [Recovering/Resolving]
  - Bone marrow failure [Recovering/Resolving]
  - Drug level increased [Unknown]
  - Neuropathy peripheral [Recovering/Resolving]
  - Motor dysfunction [Not Recovered/Not Resolved]
